FAERS Safety Report 23727223 (Version 1)
Quarter: 2024Q2

REPORT INFORMATION
  Report Type: Report from Study
  Country: US (occurrence: US)
  Receive Date: 20240410
  Receipt Date: 20240410
  Transmission Date: 20240716
  Serious: Yes (Hospitalization, Other)
  Sender: FDA-Public Use
  Company Number: US-MYLANLABS-2024M1031580

PATIENT
  Sex: Female
  Weight: 60.3 kg

DRUGS (3)
  1. CLOZAPINE [Suspect]
     Active Substance: CLOZAPINE
     Indication: Dementia
     Dosage: 12.5 MILLIGRAM
     Route: 065
     Dates: start: 20231101, end: 20240318
  2. CLOZAPINE [Suspect]
     Active Substance: CLOZAPINE
     Indication: Agitation
  3. CLOZAPINE [Suspect]
     Active Substance: CLOZAPINE
     Indication: Psychotic disorder

REACTIONS (3)
  - Hip fracture [Recovered/Resolved]
  - Fall [Unknown]
  - Dementia [Unknown]
